FAERS Safety Report 4980483-9 (Version None)
Quarter: 2006Q2

REPORT INFORMATION
  Report Type: 
  Country: None (occurrence: None)
  Receive Date: 20060424
  Receipt Date: 20060307
  Transmission Date: 20061013
  Serious: Yes (Death)
  Sender: FDA-Public Use
  Company Number: JP-SANOFI-SYNTHELABO-A01200601959

PATIENT
  Sex: Male
  Weight: 61 kg

DRUGS (9)
  1. OXALIPLATIN [Suspect]
     Indication: RECTAL CANCER
     Route: 041
     Dates: start: 20060207, end: 20060207
  2. ISOVORIN [Suspect]
     Route: 041
     Dates: start: 20060207, end: 20060208
  3. FLUOROURACIL [Suspect]
     Dosage: 500 MG (312.5 MG/M2) IV BOLUS FOLLOWED BY 750 MG (468.8 MG/M2 INFUSION ON D1+2
     Route: 041
     Dates: start: 20060207, end: 20060208
  4. DECADRON [Concomitant]
     Route: 042
     Dates: start: 20051017, end: 20060208
  5. KYTRIL [Concomitant]
     Route: 042
     Dates: start: 20051017, end: 20060208
  6. OXYCONTIN [Concomitant]
     Route: 048
     Dates: start: 20051006
  7. LENDORMIN [Concomitant]
     Route: 048
     Dates: start: 20051006
  8. GASTER [Concomitant]
     Route: 048
     Dates: start: 20051006
  9. SELBEX [Concomitant]
     Route: 048
     Dates: start: 20051006

REACTIONS (3)
  - CONDITION AGGRAVATED [None]
  - DISEASE RECURRENCE [None]
  - INTERSTITIAL LUNG DISEASE [None]
